FAERS Safety Report 15401352 (Version 1)
Quarter: 2018Q3

REPORT INFORMATION
  Report Type: Spontaneous
  Country: US (occurrence: US)
  Receive Date: 20180919
  Receipt Date: 20180919
  Transmission Date: 20181010
  Serious: Yes (Hospitalization)
  Sender: FDA-Public Use
  Company Number: US-LPDUSPRD-20181696

PATIENT
  Age: 40 Year
  Sex: Female

DRUGS (5)
  1. OPIOIDS [Concomitant]
     Active Substance: UNSPECIFIED INGREDIENT
     Dosage: UNKNOWN
     Route: 065
     Dates: start: 201611
  2. HIGH?DOSE STEROIDS [Concomitant]
     Active Substance: UNSPECIFIED INGREDIENT
     Dosage: UNKNOWN
     Route: 065
     Dates: start: 201610
  3. THYMOGLOBULIN [Concomitant]
     Active Substance: LAPINE T-LYMPHOCYTE IMMUNE GLOBULIN
     Dosage: UNKNOWN
     Route: 065
     Dates: start: 201610
  4. CYCLOSPORINE INJECTION, USP (866?10) [Suspect]
     Active Substance: CYCLOSPORINE
     Dosage: UNKNOWN
     Route: 065
     Dates: start: 201610
  5. PROPOFOL. [Suspect]
     Active Substance: PROPOFOL
     Dosage: UNKNOWN
     Route: 042
     Dates: start: 201611, end: 2016

REACTIONS (1)
  - Hypertriglyceridaemia [Recovered/Resolved]

NARRATIVE: CASE EVENT DATE: 2016
